FAERS Safety Report 10720396 (Version 1)
Quarter: 2015Q1

REPORT INFORMATION
  Report Type: Spontaneous
  Country: US (occurrence: US)
  Receive Date: 20150119
  Receipt Date: 20150119
  Transmission Date: 20150721
  Serious: No
  Sender: FDA-Public Use
  Company Number: US-UNITED THERAPEUTICS-UNT-2014-007566

PATIENT
  Age: 54 Year
  Sex: Male
  Weight: 72.56 kg

DRUGS (3)
  1. REVATIO [Concomitant]
     Active Substance: SILDENAFIL CITRATE
     Indication: PRODUCT USED FOR UNKNOWN INDICATION
  2. OPSUMIT [Concomitant]
     Active Substance: MACITENTAN
     Indication: PRODUCT USED FOR UNKNOWN INDICATION
  3. TYVASO [Suspect]
     Active Substance: TREPROSTINIL
     Indication: COR PULMONALE CHRONIC
     Dosage: 18-54 MICROGRAMS, QID
     Dates: start: 20140904

REACTIONS (7)
  - Oedema peripheral [Recovering/Resolving]
  - Oedema [Unknown]
  - Dyspnoea exertional [Unknown]
  - Drug dose omission [Unknown]
  - Headache [Recovered/Resolved]
  - Abdominal discomfort [Recovering/Resolving]
  - Gout [Unknown]

NARRATIVE: CASE EVENT DATE: 201409
